FAERS Safety Report 11702716 (Version 1)
Quarter: 2015Q4

REPORT INFORMATION
  Report Type: Spontaneous
  Country: US (occurrence: US)
  Receive Date: 20151105
  Receipt Date: 20151105
  Transmission Date: 20160304
  Serious: No
  Sender: FDA-Public Use
  Company Number: US-PFIZER INC-2015352085

PATIENT
  Age: 63 Year
  Sex: Male

DRUGS (3)
  1. ADVIL [Suspect]
     Active Substance: IBUPROFEN
     Indication: NASOPHARYNGITIS
  2. ADVIL [Suspect]
     Active Substance: IBUPROFEN
     Indication: INFLUENZA
  3. ADVIL [Suspect]
     Active Substance: IBUPROFEN
     Indication: MALAISE
     Dosage: 200 MG, UNK

REACTIONS (3)
  - Drug effect incomplete [Unknown]
  - Poor quality drug administered [Unknown]
  - Product quality issue [Unknown]
